FAERS Safety Report 7322543-3 (Version None)
Quarter: 2011Q1

REPORT INFORMATION
  Report Type: 
  Country: None (occurrence: None)
  Receive Date: 20110301
  Receipt Date: 20110218
  Transmission Date: 20110831
  Serious: Yes (Other)
  Sender: FDA-Public Use
  Company Number: CA-BAYER-2011-003128

PATIENT
  Age: 34 Year
  Sex: Female
  Weight: 47.619 kg

DRUGS (3)
  1. MIRENA [Suspect]
     Indication: CONTRACEPTION
     Dosage: 20 MCG/24HR, CONT
     Route: 015
     Dates: start: 20100501
  2. CITALOPRAM HYDROBROMIDE [Concomitant]
     Dosage: 20 MG, UNK
     Dates: start: 20100801
  3. ATIVAN [Concomitant]
     Dosage: 3 MG, UNK
     Dates: start: 20100801

REACTIONS (7)
  - FATIGUE [None]
  - HYPERHIDROSIS [None]
  - PALPITATIONS [None]
  - HYPOAESTHESIA [None]
  - BACK PAIN [None]
  - HEADACHE [None]
  - DEPRESSION [None]
